FAERS Safety Report 10115476 (Version 2)
Quarter: 2015Q1

REPORT INFORMATION
  Report Type: Other
  Country: US (occurrence: US)
  Receive Date: 20140426
  Receipt Date: 20150204
  Transmission Date: 20150720
  Serious: Yes (Hospitalization, Other)
  Sender: FDA-Public Use
  Company Number: US-GSKPPD-2014GSK018212

PATIENT
  Age: 66 Year
  Sex: Male

DRUGS (1)
  1. AVANDIA [Suspect]
     Active Substance: ROSIGLITAZONE MALEATE
     Indication: DIABETES MELLITUS
     Dosage: AVANDIA WAS NOT LISTED AMONG THE PATIENTS RECORDS REVIEWED.
     Route: 048

REACTIONS (4)
  - Coronary artery occlusion [Recovered/Resolved]
  - Atrioventricular block second degree [Recovered/Resolved]
  - Myocardial ischaemia [Unknown]
  - Arteriosclerosis coronary artery [Recovered/Resolved]

NARRATIVE: CASE EVENT DATE: 200710
